FAERS Safety Report 25080075 (Version 1)
Quarter: 2025Q1

REPORT INFORMATION
  Report Type: Spontaneous
  Country: US (occurrence: US)
  Receive Date: 20250314
  Receipt Date: 20250314
  Transmission Date: 20250408
  Serious: No
  Sender: EMERGENT BIOSOLUTIONS
  Company Number: US-Emergent Biosolutions-25000025

PATIENT
  Sex: Male

DRUGS (5)
  1. NALOXONE HYDROCHLORIDE [Suspect]
     Active Substance: NALOXONE HYDROCHLORIDE
     Indication: Overdose
     Route: 045
     Dates: start: 2020
  2. NALOXONE HYDROCHLORIDE [Suspect]
     Active Substance: NALOXONE HYDROCHLORIDE
     Indication: Respiratory depression
  3. FENTANYL [Suspect]
     Active Substance: FENTANYL
     Indication: Product used for unknown indication
     Route: 042
     Dates: start: 2020
  4. FENTANYL [Suspect]
     Active Substance: FENTANYL
     Route: 042
     Dates: start: 2020
  5. FENTANYL [Suspect]
     Active Substance: FENTANYL
     Route: 042
     Dates: start: 2020

REACTIONS (6)
  - Dry throat [Unknown]
  - Hyperhidrosis [Unknown]
  - Dysgeusia [Unknown]
  - Chills [Unknown]
  - Fatigue [Unknown]
  - Vomiting [Unknown]

NARRATIVE: CASE EVENT DATE: 20200101
